FAERS Safety Report 24168873 (Version 3)
Quarter: 2024Q3

REPORT INFORMATION
  Report Type: Report from Study
  Country: DE (occurrence: DE)
  Receive Date: 20240802
  Receipt Date: 20240823
  Transmission Date: 20241016
  Serious: Yes (Congenital Anomaly, Other)
  Sender: BRISTOL MYERS SQUIBB
  Company Number: DE-BRISTOL-MYERS SQUIBB COMPANY-2024-116820

PATIENT

DRUGS (2)
  1. ZEPOSIA [Suspect]
     Active Substance: OZANIMOD HYDROCHLORIDE
     Indication: Product used for unknown indication
     Route: 064
     Dates: start: 202105, end: 20220119
  2. PRAMIPEXOLE [Concomitant]
     Active Substance: PRAMIPEXOLE\PRAMIPEXOLE DIHYDROCHLORIDE
     Indication: Product used for unknown indication
     Route: 064
     Dates: start: 2013

REACTIONS (3)
  - Foetal exposure during pregnancy [Unknown]
  - Cytogenetic abnormality [Unknown]
  - Congenital intestinal malformation [Unknown]
